FAERS Safety Report 20327305 (Version 2)
Quarter: 2022Q1

REPORT INFORMATION
  Report Type: Spontaneous
  Country: US (occurrence: US)
  Receive Date: 20220112
  Receipt Date: 20220302
  Transmission Date: 20220423
  Serious: Yes (Hospitalization)
  Sender: FDA-Public Use
  Company Number: US-PFIZER INC-202200009823

PATIENT
  Age: 66 Year
  Sex: Female

DRUGS (2)
  1. IBRANCE [Suspect]
     Active Substance: PALBOCICLIB
     Dosage: 75 MG, CYCLIC (EVERY OTHER DAY FOR 11 DOSES THEN ONE WEEK OFF)
     Dates: start: 20200103
  2. IBRANCE [Suspect]
     Active Substance: PALBOCICLIB
     Dosage: 75 MG (EVERY OTHER DAY, SOMETIMES EVERY 3 DAYS)
     Dates: start: 20200804

REACTIONS (4)
  - Pyrexia [Unknown]
  - Off label use [Unknown]
  - White blood cell count decreased [Unknown]
  - Lymphadenopathy [Unknown]
